FAERS Safety Report 14967518 (Version 5)
Quarter: 2022Q4

REPORT INFORMATION
  Report Type: Other
  Country: US (occurrence: None)
  Receive Date: 20180604
  Receipt Date: 20221014
  Transmission Date: 20230112
  Serious: Yes (Other)
  Sender: FDA-Public Use
  Company Number: US-ROCHE-2130820

PATIENT
  Age: 61 Year
  Sex: Male
  Weight: 70.370 kg

DRUGS (10)
  1. OCREVUS [Suspect]
     Active Substance: OCRELIZUMAB
     Indication: Relapsing-remitting multiple sclerosis
     Dosage: HALF DOSE
     Route: 042
     Dates: start: 201706
  2. OCREVUS [Suspect]
     Active Substance: OCRELIZUMAB
     Dosage: FULL DOSE
     Route: 042
     Dates: start: 20180104
  3. OCREVUS [Suspect]
     Active Substance: OCRELIZUMAB
     Dosage: INITIAL SPLIT IN TWO
     Route: 042
  4. OCREVUS [Suspect]
     Active Substance: OCRELIZUMAB
     Route: 042
     Dates: start: 20180710
  5. KESIMPTA [Suspect]
     Active Substance: OFATUMUMAB
     Indication: Relapsing-remitting multiple sclerosis
     Route: 065
  6. BENADRYL [Concomitant]
     Active Substance: DIPHENHYDRAMINE HYDROCHLORIDE
     Dosage: ONGOING: NO
  7. BENADRYL [Concomitant]
     Active Substance: DIPHENHYDRAMINE HYDROCHLORIDE
     Dosage: MORE ;ONGOING: UNKNOWN
     Dates: start: 201801
  8. PREDNISONE [Concomitant]
     Active Substance: PREDNISONE
     Dosage: ONGOING: NO
  9. PREDNISONE [Concomitant]
     Active Substance: PREDNISONE
     Dates: start: 201801
  10. STRATTERA [Concomitant]
     Active Substance: ATOMOXETINE HYDROCHLORIDE
     Indication: Attention deficit hyperactivity disorder
     Dosage: ONGOING YES

REACTIONS (11)
  - Hypothermia [Recovered/Resolved]
  - Encephalitis [Recovered/Resolved]
  - Hypertension [Recovered/Resolved]
  - Chills [Recovered/Resolved]
  - Muscle spasms [Unknown]
  - Pain [Unknown]
  - Hypermetabolism [Unknown]
  - Gait disturbance [Not Recovered/Not Resolved]
  - COVID-19 [Unknown]
  - Mental impairment [Unknown]
  - Immune system disorder [Not Recovered/Not Resolved]

NARRATIVE: CASE EVENT DATE: 20180104
